FAERS Safety Report 9034868 (Version 1)
Quarter: 2013Q1

REPORT INFORMATION
  Report Type: Spontaneous
  Country: DK (occurrence: None)
  Receive Date: 20130116
  Receipt Date: 20130116
  Transmission Date: 20140127
  Serious: Yes (Death, Life-Threatening, Hospitalization, Other)
  Sender: FDA-Public Use
  Company Number: 2013MA000331

PATIENT
  Age: 75 Year
  Sex: Female

DRUGS (1)
  1. ASPIRIN\BUTALBITAL [Suspect]
     Indication: ARTERIOSCLEROSIS

REACTIONS (2)
  - Brain contusion [None]
  - Cerebral haematoma [None]
